FAERS Safety Report 23553233 (Version 1)
Quarter: 2024Q1

REPORT INFORMATION
  Report Type: Spontaneous
  Country: US (occurrence: US)
  Receive Date: 20240222
  Receipt Date: 20240222
  Transmission Date: 20240409
  Serious: No
  Sender: FDA-Public Use
  Company Number: US-AZURITY PHARMACEUTICALS, INC.-US-2023ARB005050

PATIENT
  Age: 6 Year
  Sex: Female
  Weight: 14.9 kg

DRUGS (2)
  1. FIRVANQ [Suspect]
     Active Substance: VANCOMYCIN HYDROCHLORIDE
     Indication: Clostridium difficile colitis
     Dosage: UNK, (5 ML BY G TUBE 4X/DAYS, THEN 5ML 3X/DAYS FOR 7 DAYS, THEN 5ML 2X/DAYS FOR 7 DAYS, THEN 5ML ONC
     Dates: start: 20231205
  2. PANTOPRAZOLE [Concomitant]
     Active Substance: PANTOPRAZOLE
     Indication: Product used for unknown indication
     Dosage: UNK
     Route: 065
     Dates: start: 20230928

REACTIONS (4)
  - Illness [Unknown]
  - Gastrooesophageal reflux disease [Unknown]
  - Poor quality product administered [Unknown]
  - Liquid product physical issue [Unknown]

NARRATIVE: CASE EVENT DATE: 20231215
